FAERS Safety Report 19997723 (Version 1)
Quarter: 2021Q4

REPORT INFORMATION
  Report Type: Spontaneous
  Country: DE (occurrence: DE)
  Receive Date: 20211026
  Receipt Date: 20211026
  Transmission Date: 20220303
  Serious: Yes (Hospitalization)
  Sender: FDA-Public Use
  Company Number: None

PATIENT
  Age: 77 Year
  Sex: Female

DRUGS (30)
  1. CARBOPLATIN [Suspect]
     Active Substance: CARBOPLATIN
     Indication: Ovarian cancer
     Dosage: 555 MG, TOTAL
     Route: 065
     Dates: start: 20200507, end: 20200507
  2. CARBOPLATIN [Suspect]
     Active Substance: CARBOPLATIN
     Dosage: 514 MG, TOTAL
     Route: 065
     Dates: start: 20200528, end: 20200528
  3. CARBOPLATIN [Suspect]
     Active Substance: CARBOPLATIN
     Dosage: 529 MG, TOTAL
     Route: 065
     Dates: start: 20200618, end: 20200618
  4. CARBOPLATIN [Suspect]
     Active Substance: CARBOPLATIN
     Dosage: 494 MG, TOTAL
     Route: 065
     Dates: start: 20200709, end: 20200709
  5. CARBOPLATIN [Suspect]
     Active Substance: CARBOPLATIN
     Dosage: 560 MG, TOTAL
     Route: 065
     Dates: start: 20200806, end: 20200806
  6. CARBOPLATIN [Suspect]
     Active Substance: CARBOPLATIN
     Dosage: 537 MG
     Route: 065
     Dates: start: 20200903
  7. DURVALUMAB [Suspect]
     Active Substance: DURVALUMAB
     Indication: Ovarian cancer
     Dosage: 1120 MG, Q3W
     Route: 042
     Dates: start: 20200528, end: 20200709
  8. DURVALUMAB [Suspect]
     Active Substance: DURVALUMAB
     Dosage: 1120 MG, TOTAL
     Route: 042
     Dates: start: 20200806, end: 20200806
  9. DURVALUMAB [Suspect]
     Active Substance: DURVALUMAB
     Dosage: 1120 MG, Q3W
     Route: 042
     Dates: start: 20200903, end: 20210225
  10. OLAPARIB [Suspect]
     Active Substance: OLAPARIB
     Indication: Ovarian cancer
     Dosage: 300 MG, QD
     Route: 048
     Dates: start: 20201022, end: 20210317
  11. AMLODIPINE [Concomitant]
     Active Substance: AMLODIPINE BESYLATE
     Indication: Hypertension
     Dosage: 5 MG, QD
     Route: 048
     Dates: start: 20081015
  12. BEVACIZUMAB [Concomitant]
     Active Substance: BEVACIZUMAB
     Indication: Ovarian cancer
     Dosage: 780 MG, TOTAL
     Route: 065
     Dates: start: 20200507, end: 20200507
  13. BEVACIZUMAB [Concomitant]
     Active Substance: BEVACIZUMAB
     Dosage: 795 MG, TOTAL
     Route: 065
     Dates: start: 20200528, end: 20200528
  14. BEVACIZUMAB [Concomitant]
     Active Substance: BEVACIZUMAB
     Dosage: 780 MG, TOTAL
     Route: 065
     Dates: start: 20200618, end: 20200618
  15. BEVACIZUMAB [Concomitant]
     Active Substance: BEVACIZUMAB
     Dosage: 773 MG, TOTAL
     Route: 065
     Dates: start: 20200709, end: 20200709
  16. BEVACIZUMAB [Concomitant]
     Active Substance: BEVACIZUMAB
     Dosage: 758 MG, TOTAL
     Route: 065
     Dates: start: 20200806, end: 20200806
  17. BEVACIZUMAB [Concomitant]
     Active Substance: BEVACIZUMAB
     Dosage: 765 MG, Q3W
     Route: 065
     Dates: start: 20201022, end: 20201112
  18. BEVACIZUMAB [Concomitant]
     Active Substance: BEVACIZUMAB
     Dosage: 750 MG, Q3W
     Route: 065
     Dates: start: 20200903, end: 20200924
  19. BEVACIZUMAB [Concomitant]
     Active Substance: BEVACIZUMAB
     Dosage: 728 MG, TOTAL
     Route: 065
     Dates: start: 20201203, end: 20201203
  20. BEVACIZUMAB [Concomitant]
     Active Substance: BEVACIZUMAB
     Dosage: 750 MG, Q3W
     Route: 065
     Dates: start: 20201223, end: 20210114
  21. BEVACIZUMAB [Concomitant]
     Active Substance: BEVACIZUMAB
     Dosage: 765 MG, TOTAL
     Route: 065
     Dates: start: 20210204, end: 20210204
  22. BEVACIZUMAB [Concomitant]
     Active Substance: BEVACIZUMAB
     Dosage: 760 MG, TOTAL
     Route: 065
     Dates: start: 20210225, end: 20210225
  23. CALCIUM CARBONATE [Concomitant]
     Active Substance: CALCIUM CARBONATE
     Indication: Osteoporosis
     Dosage: 600 MG, QD
     Route: 048
     Dates: start: 20160915
  24. PACLITAXEL [Concomitant]
     Active Substance: PACLITAXEL
     Indication: Ovarian cancer
     Dosage: 268 MG, TOTAL
     Route: 065
     Dates: start: 20200507, end: 20200507
  25. PACLITAXEL [Concomitant]
     Active Substance: PACLITAXEL
     Dosage: 270 MG, TOTAL
     Route: 065
     Dates: start: 20200528, end: 20200528
  26. PACLITAXEL [Concomitant]
     Active Substance: PACLITAXEL
     Dosage: 268 MG, TOTAL
     Route: 065
     Dates: start: 20200618, end: 20200618
  27. PACLITAXEL [Concomitant]
     Active Substance: PACLITAXEL
     Dosage: 266 MG, TOTAL
     Route: 065
     Dates: start: 20200709, end: 20200709
  28. PACLITAXEL [Concomitant]
     Active Substance: PACLITAXEL
     Dosage: 264 MG, TOTAL
     Route: 065
     Dates: start: 20200806, end: 20200806
  29. PACLITAXEL [Concomitant]
     Active Substance: PACLITAXEL
     Dosage: 263 MG, TOTAL
     Route: 065
     Dates: start: 20200903, end: 20200903
  30. RAMIPRIL [Concomitant]
     Active Substance: RAMIPRIL
     Indication: Hypertension
     Dosage: 5 MG, QD
     Route: 048
     Dates: start: 20081015

REACTIONS (1)
  - Mechanical ileus [Recovered/Resolved with Sequelae]

NARRATIVE: CASE EVENT DATE: 20210518
